FAERS Safety Report 24147336 (Version 1)
Quarter: 2024Q3

REPORT INFORMATION
  Report Type: Spontaneous
  Country: QA (occurrence: QA)
  Receive Date: 20240729
  Receipt Date: 20240729
  Transmission Date: 20241017
  Serious: Yes (Disabling, Other)
  Sender: INCYTE
  Company Number: QA-INCYTE CORPORATION-2024IN007821

PATIENT

DRUGS (1)
  1. TAFASITAMAB [Suspect]
     Active Substance: TAFASITAMAB
     Indication: Diffuse large B-cell lymphoma
     Dosage: 12 MILLIGRAM/KILOGRAM, EVERY 2 WEEKS, DAY 1 + 15 (FROM CYCLE 4 AND ABOVE)
     Route: 042
     Dates: start: 20230601, end: 20240430

REACTIONS (1)
  - Diffuse large B-cell lymphoma recurrent [Not Recovered/Not Resolved]

NARRATIVE: CASE EVENT DATE: 20240501
